FAERS Safety Report 23513771 (Version 1)
Quarter: 2024Q1

REPORT INFORMATION
  Report Type: Report from Study
  Country: ZA (occurrence: ZA)
  Receive Date: 20240212
  Receipt Date: 20240212
  Transmission Date: 20240410
  Serious: Yes (Life-Threatening, Hospitalization, Other)
  Sender: FDA-Public Use
  Company Number: ZA-AstraZeneca-2024A034192

PATIENT
  Age: 19 Month
  Sex: Male
  Weight: 9.9 kg

DRUGS (1)
  1. SYNAGIS [Suspect]
     Active Substance: PALIVIZUMAB
     Indication: Antiviral prophylaxis
     Route: 030

REACTIONS (4)
  - Dehydration [Unknown]
  - Productive cough [Unknown]
  - Heart rate decreased [Unknown]
  - Viral infection [Unknown]
